FAERS Safety Report 7812678 (Version 2)
Quarter: 2013Q2

REPORT INFORMATION
  Report Type: Spontaneous
  Country: US (occurrence: US)
  Receive Date: 20110215
  Receipt Date: 20130627
  Transmission Date: 20140414
  Serious: Yes (Hospitalization)
  Sender: FDA-Public Use
  Company Number: US-JNJFOC-20101101197

PATIENT
  Age: 64 Year
  Sex: Male
  Weight: 122.47 kg

DRUGS (4)
  1. REMICADE [Suspect]
     Indication: PSORIATIC ARTHROPATHY
     Route: 042
     Dates: end: 20100917
  2. REMICADE [Suspect]
     Indication: ANKYLOSING SPONDYLITIS
     Route: 042
     Dates: end: 20100917
  3. PREDNISONE [Concomitant]
     Route: 048
  4. METHOTREXATE [Concomitant]
     Route: 048

REACTIONS (6)
  - Atrial fibrillation [Recovered/Resolved]
  - Lung infiltration [Recovering/Resolving]
  - Viral infection [Recovering/Resolving]
  - Sepsis [Recovering/Resolving]
  - Viral pericarditis [Recovering/Resolving]
  - Dermal cyst [Unknown]
